FAERS Safety Report 17674339 (Version 2)
Quarter: 2020Q2

REPORT INFORMATION
  Report Type: Spontaneous
  Country: CN (occurrence: CN)
  Receive Date: 20200416
  Receipt Date: 20200504
  Transmission Date: 20200714
  Serious: Yes (Other)
  Sender: FDA-Public Use
  Company Number: CN-ROCHE-2581476

PATIENT
  Age: 72 Year
  Sex: Male

DRUGS (8)
  1. HERCEPTIN [Suspect]
     Active Substance: TRASTUZUMAB
     Indication: TUMOUR ULCERATION
     Route: 065
     Dates: start: 20181115, end: 20190327
  2. HERCEPTIN [Suspect]
     Active Substance: TRASTUZUMAB
     Dosage: ON DAY 1
     Route: 065
     Dates: start: 20191214
  3. 5-FLUOROURACIL [FLUOROURACIL] [Concomitant]
     Active Substance: FLUOROURACIL
     Route: 065
     Dates: start: 20181115, end: 20190327
  4. ZOLEDRONIC ACID [Concomitant]
     Active Substance: ZOLEDRONIC ACID
     Route: 065
     Dates: start: 2019
  5. CAMRELIZUMAB [Concomitant]
     Active Substance: CAMRELIZUMAB
     Route: 065
     Dates: start: 20191213
  6. HERCEPTIN [Suspect]
     Active Substance: TRASTUZUMAB
     Route: 065
     Dates: start: 20190604, end: 20191113
  7. IRINOTECAN [Concomitant]
     Active Substance: IRINOTECAN
     Route: 065
     Dates: start: 20181115, end: 20190327
  8. CALCIUM FOLINATE [Concomitant]
     Active Substance: LEUCOVORIN CALCIUM
     Route: 065
     Dates: start: 20181115, end: 20190327

REACTIONS (1)
  - Bone marrow failure [Unknown]
